FAERS Safety Report 6718588-4 (Version None)
Quarter: 2010Q2

REPORT INFORMATION
  Report Type: 
  Country: None (occurrence: None)
  Receive Date: 20100510
  Receipt Date: 20100427
  Transmission Date: 20101027
  Serious: Yes (Hospitalization)
  Sender: FDA-Public Use
  Company Number: AR-AMGEN-QUU409722

PATIENT
  Sex: Female
  Weight: 70 kg

DRUGS (4)
  1. ENBREL [Suspect]
     Indication: RHEUMATOID ARTHRITIS
     Route: 058
     Dates: start: 20090514
  2. METHOTREXATE [Concomitant]
     Indication: RHEUMATOID ARTHRITIS
     Route: 065
  3. DELTISONA B [Concomitant]
     Indication: RHEUMATOID ARTHRITIS
     Route: 065
  4. T4 [Concomitant]
     Indication: THYROID DISORDER
     Route: 065

REACTIONS (2)
  - PAIN [None]
  - SYNOVIAL CYST [None]
